FAERS Safety Report 7790652-0 (Version None)
Quarter: 2011Q3

REPORT INFORMATION
  Report Type: 
  Country: None (occurrence: None)
  Receive Date: 20110930
  Receipt Date: 20110916
  Transmission Date: 20111222
  Serious: Yes (Other)
  Sender: FDA-Public Use
  Company Number: DE-WATSON-2011-14835

PATIENT
  Sex: Female

DRUGS (1)
  1. DOXYCYCLINE HYCLATE [Suspect]
     Indication: PERIODONTITIS
     Dosage: 200 MG, UNKNOWN
     Route: 048

REACTIONS (3)
  - HEADACHE [None]
  - RETCHING [None]
  - PHOTOPHOBIA [None]
